FAERS Safety Report 20151961 (Version 1)
Quarter: 2021Q4

REPORT INFORMATION
  Report Type: Spontaneous
  Country: US (occurrence: None)
  Receive Date: 20211205
  Receipt Date: 20211205
  Transmission Date: 20220303
  Serious: Yes (Death)
  Sender: FDA-Public Use
  Company Number: None

PATIENT
  Age: 83 Year
  Sex: Male
  Weight: 45 kg

DRUGS (2)
  1. PERPHENAZINE [Suspect]
     Active Substance: PERPHENAZINE
     Indication: Psychotic disorder
     Route: 048
  2. ASPIRIN [Concomitant]
     Active Substance: ASPIRIN

REACTIONS (3)
  - General physical health deterioration [None]
  - Hypophagia [None]
  - Adverse drug reaction [None]

NARRATIVE: CASE EVENT DATE: 20210801
